FAERS Safety Report 11338502 (Version 1)
Quarter: 2015Q3

REPORT INFORMATION
  Report Type: Spontaneous
  Country: US (occurrence: US)
  Receive Date: 20150803
  Receipt Date: 20150803
  Transmission Date: 20151125
  Serious: No
  Sender: FDA-Public Use
  Company Number: US-ELI_LILLY_AND_COMPANY-US200710002825

PATIENT
  Age: 8 Year
  Sex: Male

DRUGS (14)
  1. STRATTERA [Suspect]
     Active Substance: ATOMOXETINE HYDROCHLORIDE
     Dosage: 5 MG, 2/D
     Dates: start: 20070928, end: 2007
  2. STRATTERA [Suspect]
     Active Substance: ATOMOXETINE HYDROCHLORIDE
     Dosage: 10 MG, EACH MORNING
     Dates: start: 2007, end: 20071008
  3. MAGNESIUM [Concomitant]
     Active Substance: MAGNESIUM
  4. VALTREX [Concomitant]
     Active Substance: VALACYCLOVIR HYDROCHLORIDE
  5. DIFLUCAN [Concomitant]
     Active Substance: FLUCONAZOLE
  6. SILYMARIN [Concomitant]
     Active Substance: MILK THISTLE
  7. ZINC [Concomitant]
     Active Substance: ZINC\ZINC CHLORIDE
     Route: 061
  8. STRATTERA [Suspect]
     Active Substance: ATOMOXETINE HYDROCHLORIDE
     Dosage: 5 MG, EACH MORNING
     Dates: start: 2007, end: 2007
  9. VITAMIN B12 [Concomitant]
     Active Substance: CYANOCOBALAMIN
     Route: 030
  10. FOLIC ACID. [Concomitant]
     Active Substance: FOLIC ACID
  11. GLUTATHIONE [Concomitant]
     Active Substance: GLUTATHIONE
     Route: 061
  12. MVI [Concomitant]
     Active Substance: VITAMINS
  13. PROBIOTICA [Concomitant]
     Active Substance: PROBIOTICS NOS
  14. MINERALS NOS [Concomitant]
     Active Substance: MINERALS

REACTIONS (4)
  - Inappropriate affect [Recovering/Resolving]
  - Middle insomnia [Recovering/Resolving]
  - Insomnia [Recovering/Resolving]
  - Obsessive-compulsive disorder [Recovering/Resolving]

NARRATIVE: CASE EVENT DATE: 200709
